FAERS Safety Report 10232393 (Version 1)
Quarter: 2014Q2

REPORT INFORMATION
  Report Type: Spontaneous
  Country: US (occurrence: US)
  Receive Date: 20140612
  Receipt Date: 20140612
  Transmission Date: 20141212
  Serious: Yes (Hospitalization)
  Sender: FDA-Public Use
  Company Number: US-BAYER-2014-085746

PATIENT
  Age: 25 Year
  Sex: Female

DRUGS (8)
  1. YAZ [Suspect]
     Indication: CONTRACEPTION
  2. YASMIN [Suspect]
  3. LOVENOX [Concomitant]
     Indication: PULMONARY EMBOLISM
  4. LOVENOX [Concomitant]
     Indication: DEEP VEIN THROMBOSIS
  5. COUMADIN [Concomitant]
     Indication: PULMONARY EMBOLISM
  6. COUMADIN [Concomitant]
     Indication: DEEP VEIN THROMBOSIS
  7. WARFARIN [Concomitant]
     Indication: PULMONARY EMBOLISM
  8. WARFARIN [Concomitant]
     Indication: DEEP VEIN THROMBOSIS

REACTIONS (4)
  - Pulmonary infarction [None]
  - Pulmonary embolism [None]
  - Deep vein thrombosis [None]
  - Thrombophlebitis superficial [None]
